FAERS Safety Report 6313521-1 (Version None)
Quarter: 2009Q3

REPORT INFORMATION
  Report Type: 
  Country: None (occurrence: None)
  Receive Date: 20090818
  Receipt Date: 20090806
  Transmission Date: 20100115
  Serious: Yes (Other)
  Sender: FDA-Public Use
  Company Number: US-ELI_LILLY_AND_COMPANY-US200907001072

PATIENT
  Sex: Male

DRUGS (3)
  1. SOMATROPIN [Suspect]
     Indication: HYPOPITUITARISM
     Dates: start: 20070101
  2. AGGRENOX [Concomitant]
     Indication: PROPHYLAXIS
     Dates: end: 20090101
  3. AGGRENOX [Concomitant]
     Dates: start: 20090101

REACTIONS (1)
  - ISCHAEMIC STROKE [None]
